FAERS Safety Report 24647710 (Version 3)
Quarter: 2025Q4

REPORT INFORMATION
  Report Type: Spontaneous
  Country: US (occurrence: US)
  Receive Date: 20241121
  Receipt Date: 20251107
  Transmission Date: 20260117
  Serious: No
  Sender: MERCK SHARP & DOHME LLC
  Company Number: None

PATIENT
  Sex: Male
  Weight: 93 kg

DRUGS (21)
  1. WINREVAIR [Suspect]
     Active Substance: SOTATERCEPT-CSRK
     Indication: Pulmonary arterial hypertension
     Dosage: DOSE DESCRIPTION : UNK
     Route: 058
  2. WINREVAIR [Suspect]
     Active Substance: SOTATERCEPT-CSRK
     Indication: Product used for unknown indication
     Dosage: INJECTED 1.8 ML OF WINREVAIR, DOSE  WAS 1.3 ML (WRONG DOSE).
  3. WINREVAIR [Suspect]
     Active Substance: SOTATERCEPT-CSRK
  4. WINREVAIR [Suspect]
     Active Substance: SOTATERCEPT-CSRK
  5. ATORVASTATIN CALCIUM [Concomitant]
     Active Substance: ATORVASTATIN CALCIUM
     Dosage: DOSE DESCRIPTION : UNK
  6. VITAMIN B12 [Concomitant]
     Active Substance: CYANOCOBALAMIN
     Dosage: DOSE DESCRIPTION : UNK
  7. LETAIRIS [Concomitant]
     Active Substance: AMBRISENTAN
     Dosage: DOSE DESCRIPTION : UNK
  8. TAMSULOSIN HYDROCHLORIDE [Concomitant]
     Active Substance: TAMSULOSIN HYDROCHLORIDE
     Dosage: DOSE DESCRIPTION : UNK
  9. LASIX [Concomitant]
     Active Substance: FUROSEMIDE
     Dosage: DOSE DESCRIPTION : UNK
  10. EPLERENONE [Concomitant]
     Active Substance: EPLERENONE
     Dosage: DOSE DESCRIPTION : UNK
  11. PANTOPRAZOLE SODIUM [Concomitant]
     Active Substance: PANTOPRAZOLE SODIUM
     Dosage: DOSE DESCRIPTION : UNK
  12. BUPROPION HYDROCHLORIDE [Concomitant]
     Active Substance: BUPROPION HYDROCHLORIDE
     Dosage: DOSE DESCRIPTION : UNK
  13. ALLOPURINOL [Concomitant]
     Active Substance: ALLOPURINOL
     Dosage: DOSE DESCRIPTION : UNK
  14. DIURIL [CHLOROTHIAZIDE] [Concomitant]
     Dosage: DOSE DESCRIPTION : UNK
  15. ADCIRCA [Concomitant]
     Active Substance: TADALAFIL
     Dosage: DOSE DESCRIPTION : UNK
  16. VENLAFAXINE HYDROCHLORIDE [Concomitant]
     Active Substance: VENLAFAXINE HYDROCHLORIDE
     Dosage: DOSE DESCRIPTION : UNK
  17. OXYGEN [Concomitant]
     Active Substance: OXYGEN
     Dosage: DOSE DESCRIPTION : UNK
  18. METFORMIN HYDROCHLORIDE [Concomitant]
     Active Substance: METFORMIN HYDROCHLORIDE
     Dosage: DOSE DESCRIPTION : UNK
  19. VITAMIN D3 [Concomitant]
     Active Substance: CHOLECALCIFEROL
     Dosage: DOSE DESCRIPTION : UNK
  20. ASPIRIN [Concomitant]
     Active Substance: ASPIRIN
     Dosage: DOSE DESCRIPTION : UNK
  21. POTASSIUM CHLORIDE [Concomitant]
     Active Substance: POTASSIUM CHLORIDE
     Dosage: DOSE DESCRIPTION : UNK

REACTIONS (4)
  - Hypotension [Unknown]
  - Dizziness [Unknown]
  - Wrong dose [Unknown]
  - Injection site discolouration [Unknown]
